FAERS Safety Report 23101577 (Version 3)
Quarter: 2024Q2

REPORT INFORMATION
  Report Type: Report from Study
  Country: AU (occurrence: AU)
  Receive Date: 20231025
  Receipt Date: 20240617
  Transmission Date: 20240716
  Serious: Yes (Life-Threatening)
  Sender: FDA-Public Use
  Company Number: AU-002147023-NVSC2023AU194383

PATIENT
  Age: 75 Year
  Sex: Male
  Weight: 102.5 kg

DRUGS (16)
  1. DOCETAXEL [Suspect]
     Active Substance: DOCETAXEL\DOCETAXEL ANHYDROUS
     Indication: Prostate cancer metastatic
     Dosage: 75 MG/M2
     Route: 042
     Dates: start: 20230810, end: 20230907
  2. LUTETIUM LU-177 VIPIVOTIDE TETRAXETAN [Suspect]
     Active Substance: LUTETIUM LU-177 VIPIVOTIDE TETRAXETAN
     Indication: Prostate cancer metastatic
     Dosage: 75 UNK
     Route: 042
     Dates: start: 20230518
  3. DEGARELIX [Concomitant]
     Active Substance: DEGARELIX
     Dosage: 80 MG, Q4W
     Route: 058
     Dates: start: 20230515
  4. DEGARELIX [Concomitant]
     Active Substance: DEGARELIX
     Dosage: 80 MG, Q4W
     Route: 058
     Dates: start: 20230518
  5. DEGARELIX [Concomitant]
     Active Substance: DEGARELIX
     Dosage: 80 MG, Q4W
     Route: 058
     Dates: start: 20230608
  6. DEGARELIX [Concomitant]
     Active Substance: DEGARELIX
     Dosage: 80 MG, Q4W
     Route: 058
     Dates: start: 20230615
  7. DEGARELIX [Concomitant]
     Active Substance: DEGARELIX
     Dosage: 80 MG, Q4W
     Route: 058
     Dates: start: 20230720
  8. DEGARELIX [Concomitant]
     Active Substance: DEGARELIX
     Indication: Hormone therapy
     Dosage: 80/240 MG, Q4W
     Route: 058
     Dates: start: 20230330
  9. DEXAMETHASONE [Concomitant]
     Active Substance: DEXAMETHASONE
     Indication: Product used for unknown indication
     Dosage: 8 MG, BID (TWICE A DAY) (1 DAY PRE CHEMO)
     Route: 048
     Dates: start: 20230720
  10. DUTASTERIDE\TAMSULOSIN [Concomitant]
     Active Substance: DUTASTERIDE\TAMSULOSIN
     Indication: Urinary retention
     Dosage: 0.5 MG
     Route: 048
     Dates: start: 202301
  11. DUTASTERIDE [Concomitant]
     Active Substance: DUTASTERIDE
     Dosage: 400 TO 500 UG, 1 CAPSULE (EVERY MORNING WITH FOOD)
     Route: 048
     Dates: start: 20230720
  12. DUTASTERIDE [Concomitant]
     Active Substance: DUTASTERIDE
     Indication: Product used for unknown indication
     Dosage: 400 TO 500 UG, 1 CAPSULE (EVERY NIGHT WITH FOOD)
     Route: 048
     Dates: start: 20230608
  13. ONDANSETRON [Concomitant]
     Active Substance: ONDANSETRON
     Indication: Nausea
     Dosage: 4 MG, PRN (3 TIMES A DAY)
     Route: 048
     Dates: start: 20230518
  14. ONDANSETRON [Concomitant]
     Active Substance: ONDANSETRON
     Indication: Vomiting
     Dosage: 4 MG, PRN (3 TIMES A DAY)
     Route: 048
     Dates: start: 20230608
  15. PEGFILGRASTIM [Concomitant]
     Active Substance: PEGFILGRASTIM
     Indication: Product used for unknown indication
     Dosage: 6 MG, Q3W
     Route: 059
     Dates: start: 20230629
  16. TELMISARTAN [Concomitant]
     Active Substance: TELMISARTAN
     Indication: Hypertension
     Dosage: 40 MG
     Route: 048
     Dates: start: 2019

REACTIONS (2)
  - Infusion related reaction [Recovered/Resolved]
  - Infusion related reaction [Recovering/Resolving]

NARRATIVE: CASE EVENT DATE: 20230831
